FAERS Safety Report 8509066-0 (Version None)
Quarter: 2012Q3

REPORT INFORMATION
  Report Type: 
  Country: None (occurrence: None)
  Receive Date: 20120703
  Receipt Date: 20120618
  Transmission Date: 20120928
  Serious: Yes (Life-Threatening)
  Sender: FDA-Public Use
  Company Number: 2012P1047543

PATIENT
  Age: 50 Year
  Sex: Female

DRUGS (8)
  1. ONDANSETRON HYDROCHLORIDE [Suspect]
     Indication: PREMEDICATION
     Dosage: 50 MG; X1; IV
     Route: 042
     Dates: start: 20120518, end: 20120518
  2. DEXCHLORPHENIRAMINE MALEATE [Suspect]
     Indication: PREMEDICATION
     Dosage: 5 MG; X1; IV
     Route: 042
     Dates: start: 20120518, end: 20120518
  3. DEXTROSE [Concomitant]
  4. PACILTAXEL [Concomitant]
  5. CISPLATIN [Concomitant]
  6. RANITIDINE HCL [Suspect]
     Indication: PREMEDICATION
     Dosage: 50 MG; X1; IV
     Route: 042
     Dates: start: 20120518, end: 20120518
  7. ONDANSETRON HYDROCHLORIDE INJECTON (NO PREF. NAME0 [Suspect]
     Indication: PREMEDICATION
     Dosage: 6 MG; X1; IV
     Route: 042
     Dates: start: 20120518, end: 20120518
  8. METHYLPREDNISOLONE [Suspect]
     Indication: PREMEDICATION
     Dosage: 120 MG; X1; IV
     Route: 042
     Dates: start: 20120518, end: 20120518

REACTIONS (3)
  - RESPIRATORY DISORDER [None]
  - MALAISE [None]
  - ERYTHEMA [None]
